FAERS Safety Report 6880095-6 (Version None)
Quarter: 2010Q3

REPORT INFORMATION
  Report Type: 
  Country: None (occurrence: None)
  Receive Date: 20100728
  Receipt Date: 20090904
  Transmission Date: 20110219
  Serious: No
  Sender: FDA-Public Use
  Company Number: US-BRISTOL-MYERS SQUIBB COMPANY-14768022

PATIENT
  Age: 49 Year
  Sex: Female

DRUGS (5)
  1. SPRYCEL [Suspect]
  2. SYNTHROID [Concomitant]
  3. TRICOR [Concomitant]
  4. IMIPRAMINE [Concomitant]
  5. NADOLOL [Concomitant]

REACTIONS (1)
  - RASH [None]
